FAERS Safety Report 15458081 (Version 1)
Quarter: 2018Q4

REPORT INFORMATION
  Report Type: Report from Study
  Country: PT (occurrence: PT)
  Receive Date: 20181003
  Receipt Date: 20181003
  Transmission Date: 20190204
  Serious: Yes (Life-Threatening, Other)
  Sender: FDA-Public Use
  Company Number: PT-AUROBINDO-AUR-APL-2018-047803

PATIENT
  Age: 37 Year
  Sex: Male

DRUGS (12)
  1. LAMIVUDINE. [Suspect]
     Active Substance: LAMIVUDINE
     Indication: CHRONIC HEPATITIS C
     Dosage: UNK
     Route: 065
  2. NELFINAVIR [Suspect]
     Active Substance: NELFINAVIR
     Indication: CHRONIC HEPATITIS C
     Dosage: UNK
     Route: 065
  3. NELFINAVIR [Suspect]
     Active Substance: NELFINAVIR
     Indication: HIV INFECTION
     Dosage: UNK, 1 ML OF TRIAMCINOLONE 40 MG INJECTED
     Route: 065
  4. LAMIVUDINE. [Suspect]
     Active Substance: LAMIVUDINE
     Indication: HEPATITIS C
     Dosage: UNK, 1 ML OF TRIAMCINOLONE 40 MG INJECTED
     Route: 065
  5. LAMIVUDINE. [Suspect]
     Active Substance: LAMIVUDINE
     Indication: HIV INFECTION
     Dosage: UNK
     Route: 065
  6. ZIDOVUDINE. [Suspect]
     Active Substance: ZIDOVUDINE
     Indication: CHRONIC HEPATITIS C
     Dosage: UNK
     Route: 065
  7. BENZATHINE BENZYLPENICILLIN [Suspect]
     Active Substance: PENICILLIN G BENZATHINE
     Indication: CHRONIC HEPATITIS C
     Dosage: UNK
     Route: 065
  8. ZIDOVUDINE. [Suspect]
     Active Substance: ZIDOVUDINE
     Indication: HIV INFECTION
     Dosage: UNK
     Route: 065
  9. BENZATHINE BENZYLPENICILLIN [Suspect]
     Active Substance: PENICILLIN G BENZATHINE
     Indication: HEPATITIS C
     Dosage: UNK (1 ML OF TRIAMCINOLONE 40 MG INJECTED)
     Route: 065
  10. NELFINAVIR [Suspect]
     Active Substance: NELFINAVIR
     Indication: HEPATITIS C
     Dosage: UNK
     Route: 065
  11. ZIDOVUDINE. [Suspect]
     Active Substance: ZIDOVUDINE
     Indication: HEPATITIS C
     Dosage: UNK, 1 ML OF TRIAMCINOLONE 40 MG INJECTED
     Route: 065
  12. BENZATHINE BENZYLPENICILLIN [Suspect]
     Active Substance: PENICILLIN G BENZATHINE
     Indication: HIV INFECTION
     Dosage: UNK
     Route: 065

REACTIONS (2)
  - Drug-induced liver injury [Unknown]
  - Hepatic fibrosis [Unknown]
